FAERS Safety Report 18061359 (Version 2)
Quarter: 2020Q4

REPORT INFORMATION
  Report Type: Spontaneous
  Country: US (occurrence: US)
  Receive Date: 20200723
  Receipt Date: 20201009
  Transmission Date: 20210113
  Serious: Yes (Hospitalization)
  Sender: FDA-Public Use
  Company Number: US-PFIZER INC-2020281043

PATIENT
  Age: 88 Year
  Sex: Male
  Weight: 89.81 kg

DRUGS (1)
  1. VYNDAMAX [Suspect]
     Active Substance: TAFAMIDIS
     Indication: AMYLOIDOSIS
     Dosage: 61 MG, 1X/DAY(61MG CAPSULES BY MOUTH ONCE A DAY)
     Route: 048
     Dates: start: 2020, end: 20200720

REACTIONS (2)
  - Failure to thrive [Unknown]
  - General physical health deterioration [Unknown]
